FAERS Safety Report 4464539-5 (Version None)
Quarter: 2004Q3

REPORT INFORMATION
  Report Type: 
  Country: None (occurrence: None)
  Receive Date: 20040929
  Receipt Date: 20040922
  Transmission Date: 20050211
  Serious: Yes (Life-Threatening, Hospitalization)
  Sender: FDA-Public Use
  Company Number: HQWYE286216AUG04

PATIENT
  Age: 57 Year
  Sex: Female

DRUGS (11)
  1. RAPAMUNE [Suspect]
     Indication: LUNG TRANSPLANT
     Dosage: 4 MG 1 X PER 1 DAY
     Route: 048
     Dates: end: 20040313
  2. PREDNISONE [Concomitant]
  3. WELLVONE (ATOVAQUONE) [Concomitant]
  4. CLONIDINE [Concomitant]
  5. NORVASC [Concomitant]
  6. PRAVASTATIN SODIUM [Concomitant]
  7. ASPIRIN [Concomitant]
  8. ANTRA (OMEPRAZOLE) [Concomitant]
  9. PROPULSID [Concomitant]
  10. STILNOX (ZOLPIDEM) [Concomitant]
  11. ROCALTROL [Concomitant]

REACTIONS (12)
  - ANAPHYLACTIC SHOCK [None]
  - BLOOD AMYLASE INCREASED [None]
  - BLOOD CALCIUM DECREASED [None]
  - BLOOD CREATININE INCREASED [None]
  - COMA [None]
  - GENERAL PHYSICAL HEALTH DETERIORATION [None]
  - HAEMOGLOBIN INCREASED [None]
  - HYPOPHOSPHATAEMIA [None]
  - IMMUNOSUPPRESSANT DRUG LEVEL INCREASED [None]
  - LIPASE INCREASED [None]
  - SEPTIC SHOCK [None]
  - SHOCK [None]
